FAERS Safety Report 7409761-0 (Version None)
Quarter: 2011Q2

REPORT INFORMATION
  Report Type: 
  Country: None (occurrence: None)
  Receive Date: 20110412
  Receipt Date: 20110322
  Transmission Date: 20111010
  Serious: Yes (Other)
  Sender: FDA-Public Use
  Company Number: US-JNJFOC-20090900476

PATIENT
  Age: 10 Year
  Sex: Female

DRUGS (6)
  1. REMICADE [Suspect]
     Dosage: AT WEEK 0
     Route: 042
  2. REMICADE [Suspect]
     Indication: CROHN'S DISEASE
     Dosage: AT WEEK 6
     Route: 042
  3. REMICADE [Suspect]
     Dosage: 4TH INFUSION
     Route: 042
  4. REMICADE [Suspect]
     Dosage: AT WEEK 2
     Route: 042
  5. CORTICOSTEROID [Concomitant]
     Indication: CROHN'S DISEASE
  6. PREDNISONE [Concomitant]
     Indication: CROHN'S DISEASE

REACTIONS (3)
  - PHARYNGITIS STREPTOCOCCAL [None]
  - SYDENHAM'S CHOREA [None]
  - RHEUMATIC FEVER [None]
